FAERS Safety Report 6643469-4 (Version None)
Quarter: 2010Q1

REPORT INFORMATION
  Report Type: 
  Country: None (occurrence: None)
  Receive Date: 20100319
  Receipt Date: 20100308
  Transmission Date: 20100710
  Serious: Yes (Other)
  Sender: FDA-Public Use
  Company Number: PL-WATSON-2010-02959

PATIENT
  Age: 13 Year
  Sex: Female

DRUGS (1)
  1. FLUVOXAMINE (WATSON LABORATORIES) [Suspect]
     Indication: GENERALISED ANXIETY DISORDER
     Dosage: 75 MG, UNK

REACTIONS (2)
  - ELECTROCARDIOGRAM QT PROLONGED [None]
  - HYPOMAGNESAEMIA [None]
